FAERS Safety Report 21932887 (Version 2)
Quarter: 2023Q2

REPORT INFORMATION
  Report Type: Spontaneous
  Country: US (occurrence: US)
  Receive Date: 20230131
  Receipt Date: 20230426
  Transmission Date: 20230721
  Serious: Yes (Other)
  Sender: FDA-Public Use
  Company Number: US-ALLERGAN-2302105US

PATIENT
  Sex: Male
  Weight: 90.71 kg

DRUGS (3)
  1. BOTOX [Suspect]
     Active Substance: ONABOTULINUMTOXINA
     Indication: Skin wrinkling
     Dosage: UNK UNK, SINGLE
  2. BOTOX [Suspect]
     Active Substance: ONABOTULINUMTOXINA
     Indication: Skin wrinkling
  3. NURTEC ODT [Suspect]
     Active Substance: RIMEGEPANT SULFATE
     Indication: Neuralgia
     Dosage: 75 MG, QOD
     Route: 060
     Dates: start: 202211

REACTIONS (7)
  - Abdominal discomfort [Unknown]
  - Haemangioma [Unknown]
  - Neuralgia [Unknown]
  - Loss of personal independence in daily activities [Unknown]
  - Bruxism [Unknown]
  - Trigeminal neuralgia [Unknown]
  - Therapeutic response decreased [Unknown]

NARRATIVE: CASE EVENT DATE: 20221101
